FAERS Safety Report 7767306-X (Version None)
Quarter: 2011Q3

REPORT INFORMATION
  Report Type: 
  Country: None (occurrence: None)
  Receive Date: 20110922
  Receipt Date: 20101119
  Transmission Date: 20111222
  Serious: No
  Sender: FDA-Public Use
  Company Number: US-ASTRAZENECA-2010SE55047

PATIENT
  Age: 10 Year
  Sex: Male

DRUGS (3)
  1. SEROQUEL XR [Suspect]
     Indication: TOURETTE'S DISORDER
     Route: 048
     Dates: start: 20101117
  2. RISPERDAL [Concomitant]
  3. CLONIDINE [Concomitant]

REACTIONS (3)
  - OPISTHOTONUS [None]
  - WRONG TECHNIQUE IN DRUG USAGE PROCESS [None]
  - DYSTONIA [None]
